FAERS Safety Report 7092734-8 (Version None)
Quarter: 2010Q4

REPORT INFORMATION
  Report Type: 
  Country: None (occurrence: None)
  Receive Date: 20101110
  Receipt Date: 20080714
  Transmission Date: 20110411
  Serious: No
  Sender: FDA-Public Use
  Company Number: US-KINGPHARMUSA00001-K200800827

PATIENT
  Sex: Female

DRUGS (1)
  1. LEVOXYL [Suspect]
     Dosage: 88 MCG, UNK

REACTIONS (3)
  - BLOOD TEST ABNORMAL [None]
  - HYPERTHYROIDISM [None]
  - ORAL DISCOMFORT [None]
